FAERS Safety Report 15000587 (Version 2)
Quarter: 2018Q2

REPORT INFORMATION
  Report Type: Report from Study
  Country: IT (occurrence: IT)
  Receive Date: 20180612
  Receipt Date: 20180621
  Transmission Date: 20180711
  Serious: Yes (Hospitalization)
  Sender: FDA-Public Use
  Company Number: IT-BAYER-2018-106231

PATIENT
  Age: 72 Year
  Sex: Female

DRUGS (1)
  1. CIPROXIN 500 MG FILM-COATED TABLETS [Suspect]
     Active Substance: CIPROFLOXACIN
     Indication: INFLUENZA
     Dosage: 1 G, QD
     Route: 048
     Dates: start: 20180201, end: 20180202

REACTIONS (4)
  - Blood methaemoglobin present [Recovered/Resolved]
  - Methaemoglobinaemia [Recovered/Resolved]
  - Bronchitis [Recovered/Resolved]
  - Chest pain [Recovered/Resolved]

NARRATIVE: CASE EVENT DATE: 20180202
